FAERS Safety Report 7556309-6 (Version None)
Quarter: 2011Q2

REPORT INFORMATION
  Report Type: 
  Country: None (occurrence: None)
  Receive Date: 20110620
  Receipt Date: 20110617
  Transmission Date: 20111010
  Serious: No
  Sender: FDA-Public Use
  Company Number: US-PFIZER INC-2011134226

PATIENT
  Sex: Female
  Weight: 85.7 kg

DRUGS (9)
  1. GEODON [Suspect]
     Indication: SLEEP DISORDER
     Dosage: 160 MG, DAILY
     Route: 048
     Dates: start: 20110101, end: 20110612
  2. BUSPIRONE [Concomitant]
     Indication: HYPERTENSION
     Dosage: 5 MG, UNK
  3. CALCIUM [Concomitant]
     Dosage: UNK
  4. TOPAMAX [Concomitant]
     Indication: SLEEP DISORDER
     Dosage: UNK
  5. VITAMIN B-12 [Concomitant]
     Dosage: UNK
  6. VITAMIN D [Concomitant]
     Dosage: UNK
  7. FLUOXETINE [Concomitant]
     Indication: DEPRESSION
     Dosage: UNK
  8. PRENATAL VITAMINS [Concomitant]
     Dosage: UNK
  9. FISH OIL [Concomitant]
     Dosage: UNK

REACTIONS (2)
  - COUGH [None]
  - BRONCHITIS [None]
